FAERS Safety Report 17082893 (Version 1)
Quarter: 2019Q4

REPORT INFORMATION
  Report Type: Report from Study
  Country: US (occurrence: US)
  Receive Date: 20191127
  Receipt Date: 20191127
  Transmission Date: 20200122
  Serious: Yes (Hospitalization)
  Sender: FDA-Public Use
  Company Number: US-PUMA BIOTECHNOLOGY, LTD.-2019US001449

PATIENT

DRUGS (11)
  1. NERLYNX [Suspect]
     Active Substance: NERATINIB
     Indication: HER-2 POSITIVE BREAST CANCER
     Dosage: 4 TABLETS, DAILY
     Route: 048
     Dates: start: 20181222, end: 201812
  2. IMODIUM [Suspect]
     Active Substance: LOPERAMIDE HYDROCHLORIDE
     Indication: PROPHYLAXIS AGAINST DIARRHOEA
  3. NERLYNX [Suspect]
     Active Substance: NERATINIB
     Dosage: 240 MG (6 TABLETS), DAILY
     Route: 048
     Dates: start: 2019
  4. NERLYNX [Suspect]
     Active Substance: NERATINIB
     Indication: MALIGNANT ANORECTAL NEOPLASM
     Dosage: 240 MG, DAILY (6 TABLETS)
     Route: 048
     Dates: start: 20181206, end: 20181215
  5. NERLYNX [Suspect]
     Active Substance: NERATINIB
     Dosage: 4 TABLETS, DAILY
     Route: 048
     Dates: start: 2019, end: 2019
  6. NERLYNX [Suspect]
     Active Substance: NERATINIB
     Dosage: 3 TABLETS, DAILY
     Route: 048
     Dates: start: 20190304, end: 2019
  7. NORCOZINE [Concomitant]
     Indication: PRODUCT USED FOR UNKNOWN INDICATION
     Dosage: 5 UNITS, PRN
     Route: 065
  8. NERLYNX [Suspect]
     Active Substance: NERATINIB
     Indication: PROGESTERONE RECEPTOR ASSAY NEGATIVE
     Dosage: 6 TABLETS, DAILY
     Route: 048
     Dates: start: 201901, end: 20190227
  9. NERLYNX [Suspect]
     Active Substance: NERATINIB
     Indication: OESTROGEN RECEPTOR ASSAY NEGATIVE
     Dosage: 5 TABLETS, DAILY
     Route: 048
     Dates: start: 201812, end: 201901
  10. FOLIC ACID. [Concomitant]
     Active Substance: FOLIC ACID
     Indication: PRODUCT USED FOR UNKNOWN INDICATION
  11. POTASSIUM CHLORIDE. [Concomitant]
     Active Substance: POTASSIUM CHLORIDE
     Indication: PRODUCT USED FOR UNKNOWN INDICATION

REACTIONS (9)
  - Hospitalisation [Unknown]
  - Diarrhoea [Recovering/Resolving]
  - Blood creatinine increased [Unknown]
  - Off label use [Unknown]
  - Metastases to liver [Unknown]
  - Dehydration [Unknown]
  - Anal cancer metastatic [Unknown]
  - Skin fissures [Recovering/Resolving]
  - Drug intolerance [Unknown]

NARRATIVE: CASE EVENT DATE: 2019
